FAERS Safety Report 5127367-3 (Version None)
Quarter: 2006Q4

REPORT INFORMATION
  Report Type: 
  Country: None (occurrence: None)
  Receive Date: 20061010
  Receipt Date: 20060927
  Transmission Date: 20070319
  Serious: Yes (Other)
  Sender: FDA-Public Use
  Company Number: GXKR2006JP05993

PATIENT
  Age: 19 Year
  Sex: Female

DRUGS (8)
  1. PREDNISONE [Suspect]
     Indication: PROPHYLAXIS AGAINST TRANSPLANT REJECTION
     Dosage: 25 MG - 7 MG, QD
  2. INFLUENZA VACCINE (NGX) (INFLUENZA VACCINE) [Suspect]
  3. METHYLPREDNISOLONE [Suspect]
     Indication: PROPHYLAXIS
     Dosage: 1 G, ONCE/SINGLE
  4. TACROLIMUS(TACROLIMUS) [Suspect]
     Indication: PROPHYLAXIS
     Dosage: 1.7 MG, QD, ORAL
     Route: 048
  5. RITUXIMAB (RITUXIMAB) [Concomitant]
  6. AMOXICILLIN [Concomitant]
  7. CLARITHROMYCIN [Concomitant]
  8. OMEPRAZOLE [Concomitant]

REACTIONS (6)
  - ALANINE AMINOTRANSFERASE INCREASED [None]
  - ANTIBODY TEST POSITIVE [None]
  - BLOOD IMMUNOGLOBULIN G INCREASED [None]
  - EPISTAXIS [None]
  - IDIOPATHIC THROMBOCYTOPENIC PURPURA [None]
  - VACCINATION COMPLICATION [None]
